FAERS Safety Report 7079800-8 (Version None)
Quarter: 2010Q4

REPORT INFORMATION
  Report Type: 
  Country: None (occurrence: None)
  Receive Date: 20101102
  Receipt Date: 20101027
  Transmission Date: 20110411
  Serious: Yes (Other)
  Sender: FDA-Public Use
  Company Number: IE-PFIZER INC-2010112578

PATIENT
  Age: 51 Year
  Sex: Female
  Weight: 53.4 kg

DRUGS (6)
  1. VIBRAMYCIN [Suspect]
     Indication: SINUSITIS
     Dosage: 100 MG, 1X/DAY
     Route: 048
     Dates: start: 20100827, end: 20100830
  2. OLMESARTAN MEDOXOMIL [Concomitant]
     Dosage: 40 MG, 1X/DAY
     Dates: start: 20090107
  3. CRESTOR [Concomitant]
     Dosage: 20 MG, 1X/DAY
     Dates: start: 20090107
  4. DIFLUCAN [Concomitant]
     Dosage: 150 MG, UNK
  5. TELFAST [Concomitant]
     Dosage: 180 MG, 1X/DAY
     Dates: start: 20090107
  6. CENTYL K [Concomitant]
     Dosage: 1 DF, 1X/DAY
     Dates: start: 20090107

REACTIONS (8)
  - ARTHRALGIA [None]
  - DRY SKIN [None]
  - LIP PAIN [None]
  - LIP SWELLING [None]
  - OEDEMA PERIPHERAL [None]
  - PRURITUS [None]
  - RASH [None]
  - SKIN DISORDER [None]
